FAERS Safety Report 21751927 (Version 1)
Quarter: 2022Q4

REPORT INFORMATION
  Report Type: Report from Study
  Country: US (occurrence: US)
  Receive Date: 20221220
  Receipt Date: 20221220
  Transmission Date: 20230113
  Serious: No
  Sender: FDA-Public Use
  Company Number: US-002147023-NVSC2022US292326

PATIENT

DRUGS (1)
  1. KESIMPTA [Suspect]
     Active Substance: OFATUMUMAB
     Indication: Product used for unknown indication
     Dosage: UNK
     Route: 065

REACTIONS (8)
  - Gait disturbance [Unknown]
  - Hypokinesia [Unknown]
  - Anxiety [Unknown]
  - Depressed mood [Unknown]
  - General physical health deterioration [Unknown]
  - Malaise [Unknown]
  - Lethargy [Recovered/Resolved]
  - Mental disorder [Unknown]
